FAERS Safety Report 9089023 (Version 1)
Quarter: 2013Q1

REPORT INFORMATION
  Report Type: Spontaneous
  Country: JP (occurrence: JP)
  Receive Date: 20130131
  Receipt Date: 20130131
  Transmission Date: 20140127
  Serious: Yes (Hospitalization, Other)
  Sender: FDA-Public Use
  Company Number: JP-PFIZER INC-2012315864

PATIENT
  Age: 36 Year
  Sex: Male
  Weight: 82 kg

DRUGS (1)
  1. ADRIACIN [Suspect]
     Indication: LYMPHOMA
     Dosage: UNK
     Route: 040
     Dates: start: 19980116, end: 20000517

REACTIONS (1)
  - Cardiac failure [Recovering/Resolving]
